FAERS Safety Report 5892358-1 (Version None)
Quarter: 2008Q3

REPORT INFORMATION
  Report Type: 
  Country: None (occurrence: None)
  Receive Date: 20080922
  Receipt Date: 20080922
  Transmission Date: 20090109
  Serious: Yes (Hospitalization, Disabling)
  Sender: FDA-Public Use
  Company Number: None

PATIENT
  Age: 59 Year
  Sex: Female
  Weight: 94.4 kg

DRUGS (1)
  1. ZICONOTIDE [Suspect]
     Indication: BONE PAIN
     Dates: start: 20080911, end: 20080916

REACTIONS (3)
  - DYSGEUSIA [None]
  - NAUSEA [None]
  - PAROSMIA [None]
